FAERS Safety Report 7377342-3 (Version None)
Quarter: 2011Q1

REPORT INFORMATION
  Report Type: 
  Country: None (occurrence: None)
  Receive Date: 20110328
  Receipt Date: 20110317
  Transmission Date: 20110831
  Serious: Yes (Other)
  Sender: FDA-Public Use
  Company Number: FR-JNJFOC-20110307868

PATIENT
  Sex: Female

DRUGS (27)
  1. HALDOL [Suspect]
     Indication: CONFUSIONAL STATE
     Route: 048
  2. SOTALOL HCL [Suspect]
     Route: 065
  3. NEXIUM [Suspect]
     Indication: PRODUCT USED FOR UNKNOWN INDICATION
     Route: 065
  4. FUROSEMIDE [Suspect]
  5. FUROSEMIDE [Suspect]
  6. SKENAN [Concomitant]
     Indication: PRODUCT USED FOR UNKNOWN INDICATION
     Route: 065
  7. BACTRIM [Suspect]
     Indication: RESPIRATORY TRACT INFECTION
     Route: 048
  8. FUROSEMIDE [Suspect]
     Indication: PRODUCT USED FOR UNKNOWN INDICATION
  9. XARELTO RIVARKSABALINI [Suspect]
     Indication: PROPHYLAXIS
     Route: 048
  10. EUPRESSYL [Suspect]
     Indication: PRODUCT USED FOR UNKNOWN INDICATION
     Route: 065
  11. NEURONTIN [Suspect]
  12. SOTALOL HCL [Suspect]
     Indication: PRODUCT USED FOR UNKNOWN INDICATION
     Route: 065
  13. CALCIUM CARBONATE [Concomitant]
     Indication: ILL-DEFINED DISORDER
  14. DOMPERIDONE [Suspect]
     Indication: DIARRHOEA
     Route: 065
  15. OLMETEC [Concomitant]
     Indication: PRODUCT USED FOR UNKNOWN INDICATION
     Route: 065
  16. KARDEGIC [Concomitant]
     Indication: PRODUCT USED FOR UNKNOWN INDICATION
     Route: 065
  17. LEVOTHYROX [Concomitant]
     Indication: PRODUCT USED FOR UNKNOWN INDICATION
     Route: 065
  18. SOLU-MEDROL [Suspect]
     Indication: BRONCHIAL DISORDER
     Route: 042
  19. SOLUPRED [Suspect]
     Indication: BRONCHIAL DISORDER
     Route: 048
  20. DOMPERIDONE [Suspect]
     Route: 065
  21. ZOLPIDEM [Concomitant]
     Indication: PRODUCT USED FOR UNKNOWN INDICATION
     Route: 065
  22. FOZITEC [Suspect]
     Indication: HYPERTENSION
     Route: 048
  23. SOTALOL HCL [Suspect]
     Route: 065
  24. LEXOMIL [Concomitant]
     Indication: PRODUCT USED FOR UNKNOWN INDICATION
     Route: 065
  25. ROCEPHIN [Suspect]
     Indication: RESPIRATORY TRACT INFECTION
  26. SOLUPRED [Suspect]
     Route: 048
  27. NEURONTIN [Suspect]
     Indication: PAIN

REACTIONS (2)
  - DIARRHOEA [None]
  - COLITIS ISCHAEMIC [None]
